FAERS Safety Report 16061262 (Version 1)
Quarter: 2019Q1

REPORT INFORMATION
  Report Type: Spontaneous
  Country: US (occurrence: US)
  Receive Date: 20190211
  Receipt Date: 20190211
  Transmission Date: 20190418
  Serious: No
  Sender: FDA-Public Use
  Company Number: None

PATIENT
  Age: 71 Year
  Sex: Female

DRUGS (1)
  1. ENTECAVIR  0.5MG TAB (X30) [Suspect]
     Active Substance: ENTECAVIR
     Dates: start: 201807, end: 201901

REACTIONS (1)
  - Intensive care [None]

NARRATIVE: CASE EVENT DATE: 20190211
